FAERS Safety Report 19867435 (Version 2)
Quarter: 2021Q4

REPORT INFORMATION
  Report Type: Other
  Country: CA (occurrence: CA)
  Receive Date: 20210922
  Receipt Date: 20211019
  Transmission Date: 20220303
  Serious: Yes (Other)
  Sender: FDA-Public Use
  Company Number: CA-ROCHE-2914656

PATIENT
  Age: 47 Year
  Sex: Female

DRUGS (16)
  1. RITUXIMAB [Suspect]
     Active Substance: RITUXIMAB
     Indication: Transplant rejection
     Route: 065
  2. ACTEMRA [Suspect]
     Active Substance: TOCILIZUMAB
     Indication: Transplant rejection
     Dosage: THERAPY START DATE 13/OCT/2021. ADDITIONAL BATCH FROM 13-OCT-2021: B3029 (2023-?DEC-31)
     Route: 042
  3. ACETAMINOPHEN [Concomitant]
     Active Substance: ACETAMINOPHEN
     Indication: Product used for unknown indication
     Route: 048
     Dates: start: 20200403
  4. TACROLIMUS [Concomitant]
     Active Substance: TACROLIMUS
     Indication: Product used for unknown indication
     Route: 048
     Dates: start: 20210520
  5. NORVASC [Concomitant]
     Active Substance: AMLODIPINE BESYLATE
     Indication: Product used for unknown indication
     Dosage: BEDTIME
     Route: 048
     Dates: start: 20200630
  6. MYCOPHENOLATE MOFETIL [Concomitant]
     Active Substance: MYCOPHENOLATE MOFETIL
     Indication: Product used for unknown indication
     Dates: start: 20210810
  7. LIPITOR [Concomitant]
     Active Substance: ATORVASTATIN CALCIUM
     Indication: Product used for unknown indication
     Dosage: BEDTIME
     Route: 048
     Dates: start: 20191216
  8. CALCITRIOL [Concomitant]
     Active Substance: CALCITRIOL
     Indication: Product used for unknown indication
     Dosage: DRUG DOSE FIRST ADMINISTERED IS 0.25 MG MICROGRAM(S)
     Route: 048
     Dates: start: 20200128
  9. CARDURA [Concomitant]
     Active Substance: DOXAZOSIN MESYLATE
     Indication: Product used for unknown indication
     Route: 048
     Dates: start: 20210823
  10. ENTECAVIR [Concomitant]
     Active Substance: ENTECAVIR
     Indication: Product used for unknown indication
     Route: 048
     Dates: start: 20200106
  11. JAMIESON MAGNESIUM [Concomitant]
     Indication: Product used for unknown indication
     Route: 048
     Dates: start: 20200103
  12. PANTOPRAZOLE [Concomitant]
     Active Substance: PANTOPRAZOLE
     Indication: Product used for unknown indication
     Route: 048
     Dates: start: 20200606
  13. PLASMA-PLEX [Concomitant]
     Active Substance: PLASMA PROTEIN FRACTION (HUMAN)
     Indication: Transplant rejection
  14. PREDNISONE [Concomitant]
     Active Substance: PREDNISONE
     Indication: Product used for unknown indication
     Dosage: MORNING
     Route: 048
     Dates: start: 20200416
  15. SEPTRA DS [Concomitant]
     Active Substance: SULFAMETHOXAZOLE\TRIMETHOPRIM
     Indication: Product used for unknown indication
     Dosage: DRUG DOSE FIRST ADMINISTERED IS 160/800 MG MILLIGRAM(S)MOREDOSAGEINFO IS 0.5 TABLET?(M-W-F)
     Route: 048
     Dates: start: 20210326
  16. LEFLUNOMIDE [Concomitant]
     Active Substance: LEFLUNOMIDE

REACTIONS (19)
  - Polyomavirus-associated nephropathy [Unknown]
  - Kidney fibrosis [Unknown]
  - Renal tubular atrophy [Unknown]
  - Urine albumin/creatinine ratio increased [Unknown]
  - Urine protein/creatinine ratio increased [Unknown]
  - Glomerular filtration rate decreased [Unknown]
  - Blood creatine increased [Unknown]
  - Blood magnesium decreased [Unknown]
  - Specific gravity urine decreased [Unknown]
  - White blood cell count increased [Unknown]
  - Haemoglobin decreased [Unknown]
  - Mean cell haemoglobin concentration decreased [Unknown]
  - Neutrophil count increased [Unknown]
  - Lymphocyte count decreased [Unknown]
  - Neutrophil count increased [Unknown]
  - Lymphocyte count decreased [Unknown]
  - Blood potassium increased [Unknown]
  - Off label use [Unknown]
  - Blood pressure systolic increased [Unknown]

NARRATIVE: CASE EVENT DATE: 20210101
